FAERS Safety Report 6026082-1 (Version None)
Quarter: 2008Q4

REPORT INFORMATION
  Report Type: 
  Country: None (occurrence: None)
  Receive Date: 20081230
  Receipt Date: 20081215
  Transmission Date: 20090506
  Serious: Yes (Death, Hospitalization)
  Sender: FDA-Public Use
  Company Number: 08-224

PATIENT
  Age: 58 Year
  Sex: Male
  Weight: 63.5036 kg

DRUGS (13)
  1. FAZACLO ODT [Suspect]
     Dosage: 150 MG BID PO
     Route: 048
     Dates: start: 20080716, end: 20081013
  2. ROCEPHIN IM [Concomitant]
  3. CLINDAMYCIN HCL [Concomitant]
  4. AUGMENTIN '125' [Concomitant]
  5. ZITHROMYCIN [Concomitant]
  6. FLOMAX [Concomitant]
  7. OXCARBAZEPINE [Concomitant]
  8. FLUCPHENAZINE PRN [Concomitant]
  9. SIMVASTATIN [Concomitant]
  10. LORATADINE [Concomitant]
  11. ALBUTEROL SULFATE AND IPRATROPIUM BROMIDE [Concomitant]
  12. ACETAMINOPHEN AND HYDROCODONE BITARTRATE [Concomitant]
  13. LORAZEPAM PRN [Concomitant]

REACTIONS (3)
  - ACUTE RESPIRATORY DISTRESS SYNDROME [None]
  - ACUTE RESPIRATORY FAILURE [None]
  - PNEUMONIA ASPIRATION [None]
